FAERS Safety Report 5517864-0 (Version None)
Quarter: 2007Q4

REPORT INFORMATION
  Report Type: 
  Country: None (occurrence: None)
  Receive Date: 20071113
  Receipt Date: 20071108
  Transmission Date: 20080405
  Serious: Yes (Life-Threatening, Other)
  Sender: FDA-Public Use
  Company Number: 07082197

PATIENT
  Age: 72 Year
  Sex: Male

DRUGS (8)
  1. ENALAPRIL MALEATE [Suspect]
     Indication: HYPERTENSION
     Dosage: 5MG, BID, ORAL
     Route: 048
     Dates: start: 20070622, end: 20070712
  2. FORADIL [Concomitant]
  3. BISOPROLOL FUMARATE [Concomitant]
  4. ALPRAZOLAM [Concomitant]
  5. SSKI (POTASSIUM IODIDE) [Concomitant]
  6. LISINOPRIL [Concomitant]
  7. SIMVASTATIN [Concomitant]
  8. CARVASIN (ISOSORBIDE DINITRATE) [Concomitant]

REACTIONS (5)
  - DYSURIA [None]
  - HAEMORRHAGE URINARY TRACT [None]
  - PHARYNGEAL OEDEMA [None]
  - PROSTATIC SPECIFIC ANTIGEN INCREASED [None]
  - SWOLLEN TONGUE [None]
